FAERS Safety Report 16909603 (Version 1)
Quarter: 2019Q4

REPORT INFORMATION
  Report Type: Spontaneous
  Country: US (occurrence: US)
  Receive Date: 20191011
  Receipt Date: 20191011
  Transmission Date: 20200122
  Serious: Yes (Hospitalization)
  Sender: FDA-Public Use
  Company Number: US-CELLTRION-2019-US-018896

PATIENT
  Age: 17 Year
  Sex: Female

DRUGS (2)
  1. LITHIUM. [Suspect]
     Active Substance: LITHIUM
     Indication: MANIA
     Dosage: 300 MG DAILY AND 600 MG NIGHTLY
     Route: 048
  2. RISPERIDONE (NON-SPECIFIC) [Suspect]
     Active Substance: RISPERIDONE
     Indication: MANIA
     Dosage: 4 MG NIGHTLY
     Route: 048

REACTIONS (1)
  - Catatonia [Recovered/Resolved]
